FAERS Safety Report 19685419 (Version 1)
Quarter: 2021Q3

REPORT INFORMATION
  Report Type: Spontaneous
  Country: US (occurrence: US)
  Receive Date: 20210811
  Receipt Date: 20210811
  Transmission Date: 20211014
  Serious: Yes (Hospitalization, Other)
  Sender: FDA-Public Use
  Company Number: US-ALEMBIC PHARMACUETICALS LIMITED-2021SCAL000330

PATIENT

DRUGS (6)
  1. PREDNISONE. [Suspect]
     Active Substance: PREDNISONE
     Dosage: 10 MG, QD
     Route: 065
  2. LEFLUNOMIDE. [Suspect]
     Active Substance: LEFLUNOMIDE
     Indication: RHEUMATOID ARTHRITIS
     Dosage: 20 MG, TID
     Route: 065
  3. LEFLUNOMIDE. [Suspect]
     Active Substance: LEFLUNOMIDE
     Dosage: 20 MG, QD
     Route: 065
  4. LEUCOVORIN [FOLINIC ACID] [Concomitant]
     Active Substance: LEUCOVORIN
     Indication: PRODUCT USED FOR UNKNOWN INDICATION
     Dosage: UNK
     Route: 065
  5. PREDNISONE. [Suspect]
     Active Substance: PREDNISONE
     Indication: RHEUMATOID ARTHRITIS
     Dosage: 30 MG, QD
     Route: 065
  6. METHOTREXATE. [Suspect]
     Active Substance: METHOTREXATE
     Indication: RHEUMATOID ARTHRITIS
     Dosage: UNK
     Route: 065

REACTIONS (14)
  - Rash erythematous [Recovering/Resolving]
  - Dyspnoea [Recovering/Resolving]
  - Epistaxis [Recovering/Resolving]
  - Accidental overdose [Unknown]
  - Hypoxia [Recovering/Resolving]
  - Interstitial lung disease [Recovering/Resolving]
  - Neutropenia [Recovered/Resolved]
  - Red blood cell sedimentation rate increased [Unknown]
  - Drug level increased [Unknown]
  - C-reactive protein increased [Unknown]
  - Lymphopenia [Unknown]
  - Toxic encephalopathy [Unknown]
  - Mucosal inflammation [Recovering/Resolving]
  - Toxicity to various agents [Unknown]
